FAERS Safety Report 7923346 (Version 8)
Quarter: 2013Q2

REPORT INFORMATION
  Report Type: Spontaneous
  Country: US (occurrence: US)
  Receive Date: 20110429
  Receipt Date: 20130508
  Transmission Date: 20140414
  Serious: Yes (Other)
  Sender: FDA-Public Use
  Company Number: US-ASTRAZENECA-2010SE26310

PATIENT
  Age: 75 Year
  Sex: Female

DRUGS (5)
  1. SYMBICORT PMDI [Suspect]
     Indication: RESPIRATORY DISORDER
     Dosage: 160/4.5 MCG, DAILY
     Route: 055
  2. NEXIUM [Suspect]
     Indication: GASTRIC DISORDER
     Route: 048
  3. CRESTOR [Suspect]
     Route: 048
  4. ACCOLATE [Suspect]
     Indication: RESPIRATORY DISORDER
     Route: 048
  5. OXYCODONE [Concomitant]

REACTIONS (20)
  - Pericardial effusion [Unknown]
  - Pulmonary oedema [Unknown]
  - Back pain [Unknown]
  - Presyncope [Unknown]
  - Bladder disorder [Unknown]
  - Respiratory disorder [Unknown]
  - Memory impairment [Unknown]
  - Dysstasia [Unknown]
  - Mobility decreased [Unknown]
  - Pain [Unknown]
  - Spinal deformity [Unknown]
  - Malaise [Unknown]
  - Fall [Unknown]
  - Spinal cord injury [Unknown]
  - Nausea [Unknown]
  - Hearing impaired [Unknown]
  - Visual impairment [Unknown]
  - Nerve injury [Unknown]
  - Personality disorder [Unknown]
  - Off label use [Unknown]
